FAERS Safety Report 18783234 (Version 1)
Quarter: 2021Q1

REPORT INFORMATION
  Report Type: Spontaneous
  Country: US (occurrence: US)
  Receive Date: 20210125
  Receipt Date: 20210125
  Transmission Date: 20210419
  Serious: Yes (Life-Threatening, Hospitalization, Other)
  Sender: FDA-Public Use
  Company Number: US-OTSUKA-2021_001750

PATIENT
  Age: 15 Year
  Sex: Male
  Weight: 60.1 kg

DRUGS (7)
  1. FLUTICASONE. [Concomitant]
     Active Substance: FLUTICASONE
     Indication: NASAL CONGESTION
     Dosage: UNK
     Route: 045
     Dates: start: 201110
  2. FOLIC ACID. [Concomitant]
     Active Substance: FOLIC ACID
     Indication: RED BLOOD CELL ABNORMALITY
     Dosage: UNK
     Route: 048
     Dates: start: 200511
  3. IBUPROFEN. [Concomitant]
     Active Substance: IBUPROFEN
     Indication: PAIN MANAGEMENT
     Dosage: UNK
     Route: 048
     Dates: start: 2014
  4. BUSULFEX [Suspect]
     Active Substance: BUSULFAN
     Indication: BONE MARROW CONDITIONING REGIMEN
     Dosage: 200 MG, UNK
     Route: 042
     Dates: start: 20190828
  5. BUSULFEX [Suspect]
     Active Substance: BUSULFAN
     Dosage: 294 MG, UNK
     Route: 042
     Dates: start: 20190829
  6. ALBUTEROL. [Concomitant]
     Active Substance: ALBUTEROL
     Indication: PROPHYLAXIS
     Dosage: UNK
     Route: 055
     Dates: start: 200511
  7. BUSULFEX [Suspect]
     Active Substance: BUSULFAN
     Dosage: 249 MG, UNK
     Route: 042
     Dates: start: 20190830, end: 20190831

REACTIONS (2)
  - Mucosal inflammation [Unknown]
  - Epiglottitis [Recovered/Resolved]

NARRATIVE: CASE EVENT DATE: 20190916
